FAERS Safety Report 7594872-X (Version None)
Quarter: 2011Q2

REPORT INFORMATION
  Report Type: 
  Country: None (occurrence: None)
  Receive Date: 20110615
  Receipt Date: 20100826
  Transmission Date: 20111010
  Serious: Yes (Disabling)
  Sender: FDA-Public Use
  Company Number: WAES 1008USA03791

PATIENT
  Age: 48 Year
  Sex: Female

DRUGS (3)
  1. COZAAR [Suspect]
     Indication: HYPERTENSION
     Dosage: 50 MG/DAILY/PO
     Route: 048
     Dates: start: 20100510
  2. COZAAR [Suspect]
     Indication: HYPERTENSION
     Dosage: 50 MG/DAILY/PO
     Route: 048
     Dates: start: 20090101, end: 20100430
  3. LOSARTAN POTASSIUM [Suspect]
     Dosage: OPHT
     Route: 047
     Dates: start: 20090430, end: 20100510

REACTIONS (1)
  - MIGRAINE [None]
